FAERS Safety Report 5700207-7 (Version None)
Quarter: 2008Q2

REPORT INFORMATION
  Report Type: 
  Country: None (occurrence: None)
  Receive Date: 20080409
  Receipt Date: 20080324
  Transmission Date: 20081010
  Serious: No
  Sender: FDA-Public Use
  Company Number: US-JNJFOC-20080305694

PATIENT
  Sex: Female

DRUGS (7)
  1. INVEGA [Suspect]
     Indication: SCHIZOPHRENIA
     Route: 048
  2. RISPERDAL CONSTA [Suspect]
     Indication: SCHIZOPHRENIA
  3. NEURONTIN [Concomitant]
  4. GABAPENTIN [Concomitant]
  5. NEXIUM [Concomitant]
  6. ATARAX [Concomitant]
  7. CELEXA [Concomitant]
     Indication: DEPRESSION

REACTIONS (4)
  - AKATHISIA [None]
  - FATIGUE [None]
  - POOR PERSONAL HYGIENE [None]
  - RESTLESSNESS [None]
